FAERS Safety Report 5410318-1 (Version None)
Quarter: 2007Q3

REPORT INFORMATION
  Report Type: 
  Country: None (occurrence: None)
  Receive Date: 20070808
  Receipt Date: 20070727
  Transmission Date: 20080115
  Serious: Yes (Other)
  Sender: FDA-Public Use
  Company Number: 2007BI011958

PATIENT
  Age: 41 Year
  Sex: Female

DRUGS (4)
  1. TYSABRI [Suspect]
     Indication: MULTIPLE SCLEROSIS
     Dosage: 300 MG; QM; IV
     Route: 042
     Dates: start: 20070403, end: 20070403
  2. REBIF [Concomitant]
  3. ORTHO-NOVUM [Concomitant]
  4. MOTRIN [Concomitant]

REACTIONS (1)
  - BREAST CANCER FEMALE [None]
